FAERS Safety Report 4281525-9 (Version None)
Quarter: 2004Q1

REPORT INFORMATION
  Report Type: 
  Country: None (occurrence: None)
  Receive Date: 20040112
  Receipt Date: 20031022
  Transmission Date: 20041129
  Serious: Yes (Other)
  Sender: FDA-Public Use
  Company Number: 343957

PATIENT
  Age: 63 Year
  Sex: Male
  Weight: 57.6 kg

DRUGS (5)
  1. FUZEON [Suspect]
     Indication: HIV INFECTION
     Dosage: 90MG 2 PER DAY SUBCUTANEOUS
     Route: 058
     Dates: start: 20030623
  2. KALETRA [Concomitant]
  3. 3TC (LAMIVUDINE) [Concomitant]
  4. TENOFOVIR (TENOFOVIR) [Concomitant]
  5. VIDEX EC [Concomitant]

REACTIONS (6)
  - HYPOTONIA [None]
  - LOCALISED INFECTION [None]
  - NOCTURIA [None]
  - OEDEMA PERIPHERAL [None]
  - TINNITUS [None]
  - WEIGHT DECREASED [None]
